FAERS Safety Report 6872816-3 (Version None)
Quarter: 2010Q3

REPORT INFORMATION
  Report Type: 
  Country: None (occurrence: None)
  Receive Date: 20100723
  Receipt Date: 20090716
  Transmission Date: 20110219
  Serious: No
  Sender: FDA-Public Use
  Company Number: US-PFIZER INC-2008081043

PATIENT
  Age: 55 Year
  Sex: Female

DRUGS (9)
  1. CHANTIX [Suspect]
     Dosage: UNK
     Dates: start: 20060101
  2. EFFEXOR [Interacting]
     Indication: DEPRESSION
     Dosage: 75 MG, 1X/DAY
     Dates: start: 20070101
  3. KLONOPIN [Concomitant]
     Indication: SLEEP DISORDER
  4. OXYCONTIN [Concomitant]
  5. METHOCARBAMOL [Concomitant]
  6. GABAPENTIN [Concomitant]
  7. PRAVASTATIN [Concomitant]
  8. MONTELUKAST SODIUM [Concomitant]
  9. NASONEX [Concomitant]

REACTIONS (9)
  - CAST APPLICATION [None]
  - DRUG INEFFECTIVE [None]
  - DRUG INTERACTION [None]
  - FREQUENT BOWEL MOVEMENTS [None]
  - NAUSEA [None]
  - NERVOUSNESS [None]
  - PAROSMIA [None]
  - VOMITING [None]
  - WEIGHT INCREASED [None]
